FAERS Safety Report 8149533-5 (Version None)
Quarter: 2012Q1

REPORT INFORMATION
  Report Type: 
  Country: None (occurrence: None)
  Receive Date: 20120218
  Receipt Date: 20111031
  Transmission Date: 20120608
  Serious: No
  Sender: FDA-Public Use
  Company Number: US-ALLERGAN-1114337US

PATIENT
  Age: 51 Year
  Sex: Female
  Weight: 72.562 kg

DRUGS (5)
  1. BOTULINUM TOXIN TYPE A [Suspect]
     Indication: MIGRAINE
     Dosage: 31 INJECTIONS, SINGLE
     Route: 030
     Dates: start: 20111027, end: 20111027
  2. PROTONIX [Concomitant]
     Indication: GASTROOESOPHAGEAL REFLUX DISEASE
     Dosage: UNK
  3. ESTRADIOL [Concomitant]
     Indication: HORMONE REPLACEMENT THERAPY
     Dosage: UNK
  4. CYMBALTA [Concomitant]
     Indication: MIGRAINE
     Dosage: UNK
     Dates: start: 20110801
  5. VERAPAMIL [Concomitant]
     Indication: MIGRAINE
     Dosage: UNK
     Dates: start: 20110901

REACTIONS (3)
  - LACRIMATION INCREASED [None]
  - VISION BLURRED [None]
  - DRY EYE [None]
